FAERS Safety Report 8820551 (Version 1)
Quarter: 2012Q4

REPORT INFORMATION
  Report Type: Report from Study
  Country: JP (occurrence: JP)
  Receive Date: 20121002
  Receipt Date: 20121002
  Transmission Date: 20130627
  Serious: Yes (Death)
  Sender: FDA-Public Use
  Company Number: JP-SANOFI-AVENTIS-2012SA071839

PATIENT
  Age: 86 Year
  Sex: Female

DRUGS (14)
  1. CLOPIDOGREL BISULFATE [Suspect]
     Indication: NON STEMI
     Route: 065
     Dates: start: 20110131, end: 20110131
  2. ACETYLSALICYLIC ACID/ALUMINIUM GLYCINATE/MAGNESIUM CARBONATE [Concomitant]
     Dates: start: 20110131, end: 20110131
  3. BAYASPIRIN [Concomitant]
     Dates: start: 20110201, end: 20110201
  4. BAYASPIRIN [Concomitant]
     Dates: start: 20110202, end: 20110202
  5. POTACOL-R [Concomitant]
     Dates: start: 20110201, end: 20110202
  6. CATABON [Concomitant]
     Dates: start: 20110201, end: 20110202
  7. SERENACE [Concomitant]
     Dates: start: 20110201, end: 20110201
  8. ADRENALINE [Concomitant]
     Dates: start: 20110202, end: 20110202
  9. ATROPINE [Concomitant]
     Dates: start: 20110202, end: 20110202
  10. HEPARIN SODIUM [Concomitant]
     Dates: start: 20110201, end: 20110202
  11. OMEPRAL [Concomitant]
     Dates: start: 20110201, end: 20110201
  12. FIRSTCIN [Concomitant]
     Dates: start: 20110201, end: 20110202
  13. TAKEPRON OD [Concomitant]
     Dates: start: 20110201, end: 20110201
  14. MYSLEE [Concomitant]
     Dates: start: 20110202, end: 20110202

REACTIONS (2)
  - Ventricle rupture [Fatal]
  - Haemorrhage [Fatal]
